FAERS Safety Report 13400742 (Version 3)
Quarter: 2017Q2

REPORT INFORMATION
  Report Type: Spontaneous
  Country: PL (occurrence: PL)
  Receive Date: 20170404
  Receipt Date: 20170413
  Transmission Date: 20170830
  Serious: Yes (Life-Threatening, Hospitalization, Other)
  Sender: FDA-Public Use
  Company Number: PHHY2017PL048956

PATIENT
  Age: 45 Year
  Sex: Male
  Weight: 109 kg

DRUGS (3)
  1. TASIGNA [Suspect]
     Active Substance: NILOTINIB
     Indication: CHRONIC MYELOID LEUKAEMIA
     Dosage: 800 MG, UNK
     Route: 048
     Dates: start: 20150212, end: 20170220
  2. TERTENSIF - SLOW RELEASE [Concomitant]
     Active Substance: INDAPAMIDE
     Indication: HYPERTENSION
     Dosage: UNK UNK, BID (1 X 1 )
     Route: 065
     Dates: start: 20160120
  3. CO PRESTARIUM [Concomitant]
     Indication: HYPERTENSION
     Dosage: UNK UNK, BID (1 X 1 )
     Route: 065
     Dates: start: 20160314

REACTIONS (4)
  - Syncope [Recovered/Resolved]
  - Angina pectoris [Recovered/Resolved]
  - Myocardial infarction [Recovered/Resolved with Sequelae]
  - Blood cholesterol increased [Unknown]

NARRATIVE: CASE EVENT DATE: 20170220
